APPROVED DRUG PRODUCT: RAUWOLFIA SERPENTINA
Active Ingredient: RAUWOLFIA SERPENTINA ROOT
Strength: 50MG
Dosage Form/Route: TABLET;ORAL
Application: A080583 | Product #001
Applicant: PRIVATE FORMULATIONS INC
Approved: Approved Prior to Jan 1, 1982 | RLD: No | RS: No | Type: DISCN